FAERS Safety Report 12699762 (Version 1)
Quarter: 2016Q3

REPORT INFORMATION
  Report Type: Report from Study
  Country: US (occurrence: US)
  Receive Date: 20160830
  Receipt Date: 20160830
  Transmission Date: 20161109
  Serious: No
  Sender: FDA-Public Use
  Company Number: US-KAMADA LIMITED-2015US003394

PATIENT

DRUGS (6)
  1. BAYER ASPIRIN [Concomitant]
     Active Substance: ASPIRIN
  2. MULTIVITAMINS [Concomitant]
     Active Substance: VITAMINS
  3. GLASSIA [Suspect]
     Active Substance: .ALPHA.1-PROTEINASE INHIBITOR HUMAN
     Indication: ALPHA-1 ANTI-TRYPSIN DEFICIENCY
     Dosage: WEEKLY
     Route: 042
  4. FISH OIL [Concomitant]
     Active Substance: FISH OIL
  5. GABAPENTIN. [Concomitant]
     Active Substance: GABAPENTIN
  6. NEXIUM [Concomitant]
     Active Substance: ESOMEPRAZOLE MAGNESIUM

REACTIONS (4)
  - Pancreas divisum [Not Recovered/Not Resolved]
  - Fibromyalgia [Unknown]
  - Nail disorder [Unknown]
  - Stomatitis [Unknown]
